FAERS Safety Report 5981126-8 (Version None)
Quarter: 2008Q4

REPORT INFORMATION
  Report Type: 
  Country: None (occurrence: None)
  Receive Date: 20081205
  Receipt Date: 20081120
  Transmission Date: 20090506
  Serious: Yes (Other)
  Sender: FDA-Public Use
  Company Number: JP-BRISTOL-MYERS SQUIBB COMPANY-14430391

PATIENT

DRUGS (1)
  1. CARBIDOPA + LEVODOPA [Suspect]
     Route: 048

REACTIONS (1)
  - GLAUCOMA [None]
